FAERS Safety Report 16989694 (Version 2)
Quarter: 2019Q4

REPORT INFORMATION
  Report Type: Spontaneous
  Country: JP (occurrence: JP)
  Receive Date: 20191104
  Receipt Date: 20191203
  Transmission Date: 20200122
  Serious: Yes (Life-Threatening, Other)
  Sender: FDA-Public Use
  Company Number: JP-BRACCO-2019JP05560

PATIENT
  Age: 54 Year
  Sex: Male

DRUGS (6)
  1. BAYASPIRIN 100 MG [Concomitant]
     Active Substance: ASPIRIN
     Dosage: DAILY DOSE 1 DF
     Route: 048
     Dates: start: 20181219
  2. MYOCOR [Concomitant]
     Active Substance: NITROGLYCERIN
     Dosage: UNK
     Route: 060
     Dates: start: 20191023
  3. METOPROLOL TARTRATE. [Concomitant]
     Active Substance: METOPROLOL TARTRATE
     Dosage: DAILY DOSE 1 DF
     Route: 048
     Dates: start: 20191023
  4. CLOPIDOGREL [Concomitant]
     Active Substance: CLOPIDOGREL BISULFATE
     Dosage: DAILY DOSE 1 DF
     Route: 048
     Dates: start: 20181219
  5. IOPAMIRON [Suspect]
     Active Substance: IOPAMIDOL
     Indication: COMPUTERISED TOMOGRAM CORONARY ARTERY
     Dosage: 100 ML, ONCE
     Route: 040
     Dates: start: 20191023, end: 20191023
  6. NIFEDIPINE. [Concomitant]
     Active Substance: NIFEDIPINE
     Dosage: DAILY DOSE 1 DF
     Route: 048
     Dates: start: 20181219

REACTIONS (1)
  - Anaphylactic reaction [Recovered/Resolved]

NARRATIVE: CASE EVENT DATE: 20191023
